FAERS Safety Report 5563037-5 (Version None)
Quarter: 2007Q4

REPORT INFORMATION
  Report Type: 
  Country: None (occurrence: None)
  Receive Date: 20071217
  Receipt Date: 20071207
  Transmission Date: 20080405
  Serious: Yes (Life-Threatening, Hospitalization)
  Sender: FDA-Public Use
  Company Number: GB-BAYER-200711339BNE

PATIENT
  Age: 58 Year
  Sex: Male

DRUGS (1)
  1. ASPIRIN [Suspect]
     Indication: PERIPHERAL VASCULAR DISORDER
     Route: 048
     Dates: end: 20071031

REACTIONS (8)
  - ACUTE CORONARY SYNDROME [None]
  - ANAEMIA [None]
  - GASTRIC ULCER [None]
  - HAEMATEMESIS [None]
  - HYPERHIDROSIS [None]
  - MELAENA [None]
  - NAUSEA [None]
  - PULMONARY OEDEMA [None]
